FAERS Safety Report 17050394 (Version 1)
Quarter: 2019Q4

REPORT INFORMATION
  Report Type: Spontaneous
  Country: US (occurrence: US)
  Receive Date: 20191119
  Receipt Date: 20191119
  Transmission Date: 20200122
  Serious: No
  Sender: FDA-Public Use
  Company Number: US-TEVA-2019-US-1139083

PATIENT
  Age: 75 Year
  Sex: Male

DRUGS (26)
  1. FLUDROCORTISONE [Suspect]
     Active Substance: FLUDROCORTISONE
     Route: 065
  2. VITAMIN B COMPLEX [Concomitant]
     Active Substance: CYANOCOBALAMIN\DEXPANTHENOL\NIACINAMIDE\PYRIDOXINE HYDROCHLORIDE\RIBOFLAVIN 5^-PHOSPHATE SODIUM\THIAMINE HYDROCHLORIDE\VITAMIN B COMPLEX
  3. CLONAZEPAM. [Concomitant]
     Active Substance: CLONAZEPAM
  4. GAS-X [Concomitant]
     Active Substance: DIMETHICONE
  5. ALPHA LIPOIC [Concomitant]
  6. CAPTOPRIL. [Concomitant]
     Active Substance: CAPTOPRIL
  7. COENZYME Q10 [Concomitant]
     Active Substance: UBIDECARENONE
  8. OXYBUTYNIN. [Concomitant]
     Active Substance: OXYBUTYNIN CHLORIDE
  9. EFFEXOR [Concomitant]
     Active Substance: VENLAFAXINE HYDROCHLORIDE
  10. NAMENDA [Concomitant]
     Active Substance: MEMANTINE HYDROCHLORIDE
  11. ASPIRIN. [Concomitant]
     Active Substance: ASPIRIN
  12. LEVOTHYROXIN [Concomitant]
     Active Substance: LEVOTHYROXINE
  13. PANTOPRAZOLE [Concomitant]
     Active Substance: PANTOPRAZOLE
  14. ARICEPT [Concomitant]
     Active Substance: DONEPEZIL HYDROCHLORIDE
  15. COLACE [Concomitant]
     Active Substance: DOCUSATE SODIUM
  16. FISH OIL [Concomitant]
     Active Substance: FISH OIL
  17. VITAMIN D3 [Concomitant]
     Active Substance: CHOLECALCIFEROL
  18. IPRATROPIUM [Concomitant]
     Active Substance: IPRATROPIUM
  19. GABAPENTIN. [Concomitant]
     Active Substance: GABAPENTIN
  20. MIDODRINE [Concomitant]
     Active Substance: MIDODRINE
  21. PROBIOTIC [Concomitant]
     Active Substance: PROBIOTICS NOS
  22. SINEMET [Concomitant]
     Active Substance: CARBIDOPA\LEVODOPA
  23. NORTHERA [Suspect]
     Active Substance: DROXIDOPA
     Indication: PARKINSON^S DISEASE
     Dosage: 600 MILLIGRAM DAILY;
     Route: 048
     Dates: start: 20170509
  24. FAMOTIDINE. [Concomitant]
     Active Substance: FAMOTIDINE
  25. LINZESS [Concomitant]
     Active Substance: LINACLOTIDE
  26. OMEPRAZOLE. [Concomitant]
     Active Substance: OMEPRAZOLE

REACTIONS (3)
  - Product administration error [Unknown]
  - Product use complaint [Unknown]
  - Nausea [Recovering/Resolving]
